FAERS Safety Report 9669590 (Version 2)
Quarter: 2013Q4

REPORT INFORMATION
  Report Type: Spontaneous
  Country: DE (occurrence: DE)
  Receive Date: 20131105
  Receipt Date: 20131127
  Transmission Date: 20140711
  Serious: Yes (Other)
  Sender: FDA-Public Use
  Company Number: GXKR2013DE003442

PATIENT
  Age: 49 Year
  Sex: Female
  Weight: 73 kg

DRUGS (6)
  1. VERAPAMIL 1A PHARMA [Suspect]
     Indication: HYPERTENSION
     Dosage: 120 MG, UNK
     Route: 048
     Dates: start: 201308, end: 201310
  2. VERAPAMIL 1A PHARMA [Suspect]
     Indication: TACHYCARDIA
  3. VERAPAMIL 1A PHARMA [Suspect]
     Indication: ARRHYTHMIA
  4. RAMIPRIL [Concomitant]
     Indication: HYPERTENSION
     Dosage: 2.5 MG, UNK
     Route: 048
     Dates: start: 201204
  5. DESOGESTREL [Concomitant]
     Indication: BENIGN OVARIAN TUMOUR
     Dosage: 75 UG, UNK
     Route: 048
     Dates: start: 201309
  6. FERROUS SULFATE [Concomitant]
     Indication: ANAEMIA
     Dosage: UNK
     Route: 048
     Dates: start: 201309

REACTIONS (2)
  - Dyspnoea at rest [Recovered/Resolved]
  - Dyspnoea [Recovered/Resolved]
